FAERS Safety Report 21045943 (Version 1)
Quarter: 2022Q3

REPORT INFORMATION
  Report Type: Spontaneous
  Country: CA (occurrence: CA)
  Receive Date: 20220706
  Receipt Date: 20220706
  Transmission Date: 20221027
  Serious: Yes (Other)
  Sender: FDA-Public Use
  Company Number: CA-BAUSCH-BL-2022-016784

PATIENT
  Age: 19 Year
  Sex: Female

DRUGS (1)
  1. TRETINOIN [Suspect]
     Active Substance: TRETINOIN
     Indication: Product used for unknown indication
     Dosage: APPROXIMATELY 10 APPLICATIONS
     Route: 061

REACTIONS (2)
  - Papilloedema [Recovered/Resolved]
  - Disease recurrence [Recovered/Resolved]
